FAERS Safety Report 15388070 (Version 1)
Quarter: 2018Q3

REPORT INFORMATION
  Report Type: Spontaneous
  Country: FR (occurrence: FR)
  Receive Date: 20180915
  Receipt Date: 20180915
  Transmission Date: 20181010
  Serious: Yes (Other)
  Sender: FDA-Public Use
  Company Number: FR-AUROBINDO-AUR-APL-2018-045507

PATIENT
  Age: 15 Year
  Sex: Female

DRUGS (2)
  1. AMOXICILLINE/ACIDE CLAVULANIQUE BIOGARAN [Suspect]
     Active Substance: AMOXICILLIN\CLAVULANIC ACID
     Indication: EAR INFECTION
     Dosage: 1 DF, SINGLE
     Route: 048
     Dates: start: 20150831, end: 20150831
  2. IBUPROFEN. [Suspect]
     Active Substance: IBUPROFEN
     Indication: EAR INFECTION
     Dosage: 1 DF, SINGLE
     Route: 048
     Dates: start: 20150831, end: 20150831

REACTIONS (1)
  - Anaphylactic shock [Recovered/Resolved]

NARRATIVE: CASE EVENT DATE: 20150831
